FAERS Safety Report 26126167 (Version 1)
Quarter: 2025Q4

REPORT INFORMATION
  Report Type: Spontaneous
  Country: US (occurrence: US)
  Receive Date: 20251205
  Receipt Date: 20251205
  Transmission Date: 20260118
  Serious: Yes (Hospitalization, Other)
  Sender: INSUD PHARMA
  Company Number: US-EXELTIS PHARMACEUTICAL HOLDING, S.L.-2511US10077

PATIENT

DRUGS (1)
  1. TESTOSTERONE [Suspect]
     Active Substance: TESTOSTERONE
     Indication: Hormone replacement therapy
     Dosage: UNK
     Route: 030

REACTIONS (14)
  - Renal infarct [Unknown]
  - Peripheral ischaemia [Unknown]
  - Cerebrovascular accident [Unknown]
  - Acute myocardial infarction [Unknown]
  - Polycythaemia [Unknown]
  - Cerebral infarction [Unknown]
  - Haemorrhage intracranial [Unknown]
  - Ischaemic cardiomyopathy [Unknown]
  - Cardiac ventricular thrombosis [Unknown]
  - Gastrointestinal haemorrhage [Unknown]
  - Renal artery stenosis [Unknown]
  - Iliac artery stenosis [Unknown]
  - Confusional state [Unknown]
  - Hemiparesis [Unknown]
